FAERS Safety Report 17953362 (Version 1)
Quarter: 2020Q2

REPORT INFORMATION
  Report Type: Spontaneous
  Country: US (occurrence: US)
  Receive Date: 20200628
  Receipt Date: 20200628
  Transmission Date: 20200714
  Serious: No
  Sender: FDA-Public Use
  Company Number: US-ASTRAZENECA-2020SE81290

PATIENT
  Sex: Female
  Weight: 68 kg

DRUGS (1)
  1. SYMBICORT [Suspect]
     Active Substance: BUDESONIDE\FORMOTEROL FUMARATE DIHYDRATE
     Indication: ASTHMA
     Dosage: UNKNOWN DOSE, EVERY DAY
     Route: 055
     Dates: start: 2006

REACTIONS (6)
  - Oropharyngeal pain [Recovered/Resolved]
  - Nasal congestion [Unknown]
  - Fatigue [Unknown]
  - Upper-airway cough syndrome [Unknown]
  - Speech disorder [Unknown]
  - Dysphonia [Unknown]
